FAERS Safety Report 4810473-8 (Version None)
Quarter: 2005Q4

REPORT INFORMATION
  Report Type: 
  Country: None (occurrence: None)
  Receive Date: 20051025
  Receipt Date: 20051025
  Transmission Date: 20060501
  Serious: Yes (Hospitalization)
  Sender: FDA-Public Use
  Company Number: None

PATIENT
  Age: 69 Year
  Sex: Male

DRUGS (12)
  1. EPTIFIBATIDE 22.6MG IV BOLUS [Suspect]
     Dosage: FOLLOWED BY 7.5MG/HR
     Route: 040
     Dates: start: 20050802, end: 20050802
  2. ENOXAPARIN SODIUM [Suspect]
     Dosage: 120MG SQ BID
     Route: 058
     Dates: start: 20050802, end: 20050802
  3. ACETAMINOPHEN [Concomitant]
  4. AMITRIPTYLINE HCL [Concomitant]
  5. ASPIRIN [Concomitant]
  6. CHLORIDAZEPOXIDE HCL [Concomitant]
  7. DOCUSATE SODIUM [Concomitant]
  8. HUMULIN R [Concomitant]
  9. MAGNESIUM HYDROXIDE TAB [Concomitant]
  10. METHADONE HCL [Concomitant]
  11. NALOXONE HCL [Concomitant]
  12. NITROGLYCERIN [Concomitant]

REACTIONS (3)
  - EPISTAXIS [None]
  - HAEMATOCRIT DECREASED [None]
  - HAEMOPTYSIS [None]
